FAERS Safety Report 12250560 (Version 1)
Quarter: 2016Q2

REPORT INFORMATION
  Report Type: Spontaneous
  Country: US (occurrence: US)
  Receive Date: 20160408
  Receipt Date: 20160408
  Transmission Date: 20160815
  Serious: Yes (Other)
  Sender: FDA-Public Use
  Company Number: US-BAUSCH-BL-2016-008073

PATIENT
  Age: 8 Year
  Sex: Male
  Weight: 30 kg

DRUGS (2)
  1. BACITRACIN. [Concomitant]
     Active Substance: BACITRACIN
     Indication: OPHTHALMIC HERPES SIMPLEX
     Route: 047
  2. ACYCLOVIR. [Suspect]
     Active Substance: ACYCLOVIR
     Indication: OPHTHALMIC HERPES SIMPLEX
     Route: 048

REACTIONS (1)
  - Ophthalmic herpes simplex [Recovered/Resolved]
